FAERS Safety Report 9796898 (Version 1)
Quarter: 2014Q1

REPORT INFORMATION
  Report Type: Spontaneous
  Country: US (occurrence: US)
  Receive Date: 20140104
  Receipt Date: 20140104
  Transmission Date: 20141002
  Serious: Yes (Hospitalization)
  Sender: FDA-Public Use
  Company Number: US-BRISTOL-MYERS SQUIBB COMPANY-19963628

PATIENT
  Age: 89 Year
  Sex: Female
  Weight: 71.65 kg

DRUGS (6)
  1. METFORMIN HCL [Suspect]
     Dosage: 1DF: 1000 UNITS NOS.
  2. LEVOTHYROXINE [Concomitant]
  3. BABY ASPIRIN [Concomitant]
  4. POTASSIUM [Concomitant]
  5. PROPANOLOL HYDROCHLORIDE [Concomitant]
  6. LIPITOR [Concomitant]

REACTIONS (2)
  - Cardiac disorder [Unknown]
  - Diarrhoea [Unknown]
